FAERS Safety Report 8568615 (Version 4)
Quarter: 2012Q4

REPORT INFORMATION
  Report Type: 
  Country: US (occurrence: US)
  Receive Date: 20120518
  Receipt Date: 20121204
  Transmission Date: 20130627
  Serious: No
  Sender: FDA-Public Use
  Company Number: US-ASTRAZENECA-2012SE28518

PATIENT
  Age: 59 Year
  Sex: Female

DRUGS (10)
  1. SEROQUEL [Suspect]
     Indication: BIPOLAR DISORDER
     Route: 048
  2. SEROQUEL [Suspect]
     Indication: HYPOMANIA
     Route: 048
  3. SEROQUEL [Suspect]
     Indication: BIPOLAR DISORDER
     Route: 048
  4. SEROQUEL [Suspect]
     Indication: HYPOMANIA
     Route: 048
  5. SEROQUEL [Suspect]
     Indication: BIPOLAR DISORDER
     Route: 048
  6. SEROQUEL [Suspect]
     Indication: HYPOMANIA
     Route: 048
  7. SEROQUEL [Suspect]
     Indication: BIPOLAR DISORDER
     Route: 048
     Dates: end: 20121008
  8. SEROQUEL [Suspect]
     Indication: HYPOMANIA
     Route: 048
     Dates: end: 20121008
  9. SEROQUEL [Suspect]
     Indication: BIPOLAR DISORDER
     Dosage: 200 MG IN THE MORNING AND 600 MG AT NIGHT
     Route: 048
     Dates: start: 20121009
  10. SEROQUEL [Suspect]
     Indication: HYPOMANIA
     Dosage: 200 MG IN THE MORNING AND 600 MG AT NIGHT
     Route: 048
     Dates: start: 20121009

REACTIONS (3)
  - Adverse event [Unknown]
  - Increased appetite [Unknown]
  - Drug dose omission [Unknown]
